FAERS Safety Report 6005434-X (Version None)
Quarter: 2008Q4

REPORT INFORMATION
  Report Type: 
  Country: None (occurrence: None)
  Receive Date: 20081217
  Receipt Date: 20081211
  Transmission Date: 20090506
  Serious: No
  Sender: FDA-Public Use
  Company Number: JP-JNJFOC-20081200719

PATIENT
  Sex: Female

DRUGS (1)
  1. ITRIZOLE [Suspect]
     Indication: ORAL CANDIDIASIS
     Route: 048

REACTIONS (2)
  - C-REACTIVE PROTEIN INCREASED [None]
  - STOMATITIS [None]
